FAERS Safety Report 17306780 (Version 1)
Quarter: 2020Q1

REPORT INFORMATION
  Report Type: Spontaneous
  Country: US (occurrence: US)
  Receive Date: 20200123
  Receipt Date: 20200123
  Transmission Date: 20200409
  Serious: No
  Sender: FDA-Public Use
  Company Number: NVSC2020US016217

PATIENT
  Sex: Female
  Weight: 62 kg

DRUGS (2)
  1. PIQRAY [Suspect]
     Active Substance: ALPELISIB
     Dosage: 150 MG, QD
     Route: 065
  2. PIQRAY [Suspect]
     Active Substance: ALPELISIB
     Indication: MALIGNANT NIPPLE NEOPLASM FEMALE
     Dosage: 300 MG, QD
     Route: 065
     Dates: start: 20191112, end: 20200113

REACTIONS (1)
  - Weight decreased [Recovering/Resolving]
